FAERS Safety Report 25254712 (Version 1)
Quarter: 2025Q2

REPORT INFORMATION
  Report Type: Report from Study
  Country: PL (occurrence: PL)
  Receive Date: 20250430
  Receipt Date: 20250430
  Transmission Date: 20250717
  Serious: Yes (Other)
  Sender: MYLAN
  Company Number: PL-MYLANLABS-2025M1036621

PATIENT

DRUGS (12)
  1. TOBRAMYCIN [Suspect]
     Active Substance: TOBRAMYCIN
     Indication: Prophylaxis
     Dosage: 1 GTT DROPS, QID (1 DROP IN THE CONJUNCTIVAL SAC OF THE OPERATED EYE, 4 TIMES DAILY FOR 14 DAYS)
  2. TOBRAMYCIN [Suspect]
     Active Substance: TOBRAMYCIN
     Dosage: 1 GTT DROPS, QID (1 DROP IN THE CONJUNCTIVAL SAC OF THE OPERATED EYE, 4 TIMES DAILY FOR 14 DAYS)
     Route: 061
  3. TOBRAMYCIN [Suspect]
     Active Substance: TOBRAMYCIN
     Dosage: 1 GTT DROPS, QID (1 DROP IN THE CONJUNCTIVAL SAC OF THE OPERATED EYE, 4 TIMES DAILY FOR 14 DAYS)
     Route: 061
  4. TOBRAMYCIN [Suspect]
     Active Substance: TOBRAMYCIN
     Dosage: 1 GTT DROPS, QID (1 DROP IN THE CONJUNCTIVAL SAC OF THE OPERATED EYE, 4 TIMES DAILY FOR 14 DAYS)
  5. DEXPANTHENOL [Suspect]
     Active Substance: DEXPANTHENOL
     Indication: Prophylaxis
     Dosage: 1 GTT DROPS, QID (1 DROP IN THE CONJUNCTIVAL SAC OF THE OPERATED EYE, 4 TIMES DAILY FOR 14 DAYS)
  6. DEXPANTHENOL [Suspect]
     Active Substance: DEXPANTHENOL
     Dosage: 1 GTT DROPS, QID (1 DROP IN THE CONJUNCTIVAL SAC OF THE OPERATED EYE, 4 TIMES DAILY FOR 14 DAYS)
     Route: 061
  7. DEXPANTHENOL [Suspect]
     Active Substance: DEXPANTHENOL
     Dosage: 1 GTT DROPS, QID (1 DROP IN THE CONJUNCTIVAL SAC OF THE OPERATED EYE, 4 TIMES DAILY FOR 14 DAYS)
     Route: 061
  8. DEXPANTHENOL [Suspect]
     Active Substance: DEXPANTHENOL
     Dosage: 1 GTT DROPS, QID (1 DROP IN THE CONJUNCTIVAL SAC OF THE OPERATED EYE, 4 TIMES DAILY FOR 14 DAYS)
  9. DEXAMETHASONE [Suspect]
     Active Substance: DEXAMETHASONE
     Indication: Prophylaxis
     Dosage: 1 GTT DROPS, QID (1 DROP IN THE CONJUNCTIVAL SAC OF THE OPERATED EYE, 4 TIMES DAILY FOR 14 DAYS)
  10. DEXAMETHASONE [Suspect]
     Active Substance: DEXAMETHASONE
     Dosage: 1 GTT DROPS, QID (1 DROP IN THE CONJUNCTIVAL SAC OF THE OPERATED EYE, 4 TIMES DAILY FOR 14 DAYS)
     Route: 061
  11. DEXAMETHASONE [Suspect]
     Active Substance: DEXAMETHASONE
     Dosage: 1 GTT DROPS, QID (1 DROP IN THE CONJUNCTIVAL SAC OF THE OPERATED EYE, 4 TIMES DAILY FOR 14 DAYS)
     Route: 061
  12. DEXAMETHASONE [Suspect]
     Active Substance: DEXAMETHASONE
     Dosage: 1 GTT DROPS, QID (1 DROP IN THE CONJUNCTIVAL SAC OF THE OPERATED EYE, 4 TIMES DAILY FOR 14 DAYS)

REACTIONS (1)
  - Granuloma [Recovering/Resolving]
